FAERS Safety Report 16656911 (Version 4)
Quarter: 2019Q3

REPORT INFORMATION
  Report Type: Report from Study
  Country: None (occurrence: HU)
  Receive Date: 20190801
  Receipt Date: 20190927
  Transmission Date: 20191004
  Serious: Yes (Death, Hospitalization)
  Sender: FDA-Public Use
  Company Number: HU-ABBVIE-19K-076-2873574-00

PATIENT
  Age: 65 Year
  Sex: Male

DRUGS (6)
  1. CO-ARBARTAN [Concomitant]
     Indication: HYPERTENSION
     Dosage: 100MG /25MG,IN THE MORNING
     Route: 048
  2. ENOXAPARIN SODIUM. [Concomitant]
     Active Substance: ENOXAPARIN SODIUM
     Indication: PRODUCT USED FOR UNKNOWN INDICATION
  3. ARBARTAN [Concomitant]
     Active Substance: LOSARTAN POTASSIUM
     Indication: HYPERTENSION
     Dosage: IN THE MORNING
     Route: 048
  4. AMLODIPINE [Concomitant]
     Active Substance: AMLODIPINE BESYLATE
     Indication: HYPERTENSION
     Dosage: IN THE MORNING
     Route: 048
  5. ROWATINEX [Concomitant]
     Active Substance: HERBALS
     Indication: PROPHYLAXIS
     Dosage: IN THE MORNING
     Route: 048
  6. DUODOPA [Suspect]
     Active Substance: CARBIDOPA\LEVODOPA
     Indication: PARKINSON^S DISEASE
     Dosage: MORNING DOSE 8.0 ML; CONTINUOUS DOSE 2.5 ML/H;EXTRA DOSE 1.7 ML
     Route: 050
     Dates: start: 20120907

REACTIONS (7)
  - Parkinson^s disease [Unknown]
  - Mobility decreased [Not Recovered/Not Resolved]
  - Hypertension [Fatal]
  - Hallucination [Not Recovered/Not Resolved]
  - Dehydration [Unknown]
  - Urinary tract infection [Fatal]
  - Confusional state [Not Recovered/Not Resolved]

NARRATIVE: CASE EVENT DATE: 20190727
